FAERS Safety Report 6766962-2 (Version None)
Quarter: 2010Q2

REPORT INFORMATION
  Report Type: 
  Country: None (occurrence: None)
  Receive Date: 20100611
  Receipt Date: 20100603
  Transmission Date: 20101027
  Serious: Yes (Death, Hospitalization)
  Sender: FDA-Public Use
  Company Number: GB-AMGEN-QUU416495

PATIENT
  Sex: Female

DRUGS (2)
  1. ENBREL [Suspect]
     Indication: DRUG USE FOR UNKNOWN INDICATION
     Dates: start: 20100301
  2. METHOTREXATE [Suspect]
     Dosage: UNKNOWN

REACTIONS (3)
  - DEATH [None]
  - DYSPNOEA [None]
  - LUNG DISORDER [None]
